FAERS Safety Report 6331912-X (Version None)
Quarter: 2009Q3

REPORT INFORMATION
  Report Type: 
  Country: None (occurrence: None)
  Receive Date: 20090826
  Receipt Date: 20090820
  Transmission Date: 20100115
  Serious: Yes (Death)
  Sender: FDA-Public Use
  Company Number: 2009SP001984

PATIENT
  Sex: Male

DRUGS (3)
  1. ALVESCO [Suspect]
     Dosage: INHALATION
     Route: 055
  2. CON MEDS [Concomitant]
  3. PREV MEDS [Concomitant]

REACTIONS (1)
  - DEATH [None]
